FAERS Safety Report 15941019 (Version 3)
Quarter: 2019Q1

REPORT INFORMATION
  Report Type: Spontaneous
  Country: US (occurrence: US)
  Receive Date: 20190208
  Receipt Date: 20190301
  Transmission Date: 20190417
  Serious: Yes (Hospitalization, Other)
  Sender: FDA-Public Use
  Company Number: US-ASTRAZENECA-2018SF22486

PATIENT
  Age: 19183 Day

DRUGS (13)
  1. PRILOSEC [Suspect]
     Active Substance: OMEPRAZOLE MAGNESIUM
     Route: 048
     Dates: start: 201404, end: 201703
  2. ALLOPURINOL. [Concomitant]
     Active Substance: ALLOPURINOL
  3. IBUPROFEN. [Concomitant]
     Active Substance: IBUPROFEN
  4. LOVASTATIN. [Concomitant]
     Active Substance: LOVASTATIN
  5. PRILOSEC OTC [Suspect]
     Active Substance: OMEPRAZOLE MAGNESIUM
     Route: 048
     Dates: start: 201402, end: 201703
  6. COLCHICINE. [Concomitant]
     Active Substance: COLCHICINE
  7. PRILOSEC [Suspect]
     Active Substance: OMEPRAZOLE MAGNESIUM
     Dosage: GENERIC
     Route: 048
     Dates: start: 20150416
  8. NAPROXEN. [Concomitant]
     Active Substance: NAPROXEN
  9. LISINOPRIL. [Concomitant]
     Active Substance: LISINOPRIL
  10. ASPIRIN. [Concomitant]
     Active Substance: ASPIRIN
  11. METFORMIN [Concomitant]
     Active Substance: METFORMIN HYDROCHLORIDE
  12. LEVSIN [Concomitant]
     Active Substance: HYOSCYAMINE SULFATE
  13. NORVASC [Concomitant]
     Active Substance: AMLODIPINE BESYLATE

REACTIONS (3)
  - Acute kidney injury [Unknown]
  - Renal injury [Unknown]
  - Chronic kidney disease [Unknown]

NARRATIVE: CASE EVENT DATE: 20160501
